FAERS Safety Report 5256048-0 (Version None)
Quarter: 2007Q1

REPORT INFORMATION
  Report Type: 
  Country: None (occurrence: None)
  Receive Date: 20070306
  Receipt Date: 20070226
  Transmission Date: 20070707
  Serious: Yes (Other)
  Sender: FDA-Public Use
  Company Number: JP-JNJFOC-20070300289

PATIENT
  Sex: Female
  Weight: 59.6 kg

DRUGS (12)
  1. INFLIXIMAB [Suspect]
     Dosage: 3, 6 OR 10MG/KG
     Route: 042
  2. INFLIXIMAB [Suspect]
     Dosage: 3, 6 OR 10MG/KG
     Route: 042
  3. INFLIXIMAB [Suspect]
     Route: 042
  4. INFLIXIMAB [Suspect]
     Route: 042
  5. INFLIXIMAB [Suspect]
     Indication: RHEUMATOID ARTHRITIS
     Route: 042
  6. PREDONINE [Concomitant]
     Indication: RHEUMATOID ARTHRITIS
     Dosage: DATE OF ADMINISTRATION: BEFORE 22-DEC-05
     Route: 048
  7. LOXONIN [Concomitant]
     Indication: RHEUMATOID ARTHRITIS
     Dosage: DATE OF ADMINISTRATION: BEFORE 22-DEC-05
     Route: 048
  8. SELTOUCH [Concomitant]
     Indication: RHEUMATOID ARTHRITIS
     Dosage: DATE OF ADMINISTRATION: BEFORE 22-DEC-05.  ROUTE OF ADMINISTRATION: TO
  9. MUCOSTA [Concomitant]
     Indication: GASTROINTESTINAL DISORDER THERAPY
     Dosage: DATE OF ADMINISTRATION: BEFORE 22-DEC-05
     Route: 048
  10. MYSLEE [Concomitant]
     Indication: INSOMNIA
     Dosage: DATE OF ADMINISTRATION: BEFORE 22-DEC-05
     Route: 048
  11. RHYTHMY [Concomitant]
     Indication: INSOMNIA
     Route: 048
  12. RHEUMATREX [Concomitant]
     Indication: RHEUMATOID ARTHRITIS
     Dosage: DATE OF ADMINISTRATION: BEFORE 22-DEC-05
     Route: 048

REACTIONS (1)
  - CERVICAL DYSPLASIA [None]
